FAERS Safety Report 8930070 (Version 2)
Quarter: 2012Q4

REPORT INFORMATION
  Report Type: 
  Country: JP (occurrence: JP)
  Receive Date: 20121128
  Receipt Date: 20121221
  Transmission Date: 20130627
  Serious: Yes (Death, Other)
  Sender: FDA-Public Use
  Company Number: JP-009507513-1211JPN009880

PATIENT
  Age: 57 Year
  Sex: Male
  Weight: 46.5 kg

DRUGS (11)
  1. GASTER [Suspect]
     Indication: GASTROINTESTINAL HAEMORRHAGE
     Dosage: 20 mg, bid
     Route: 042
     Dates: start: 20120428, end: 20120528
  2. AMBISOME [Suspect]
     Indication: FUNGAL INFECTION
     Dosage: 250 mg, qd
     Route: 042
     Dates: start: 20120427, end: 20120505
  3. FUNGUARD [Suspect]
     Indication: FUNGAL INFECTION
     Dosage: 300 mg, qd
     Route: 041
     Dates: start: 20120508, end: 20120520
  4. VFEND [Suspect]
     Indication: ASPERGILLOSIS
     Dosage: 300 mg, bid
     Route: 042
     Dates: start: 20120505, end: 20120506
  5. VFEND [Suspect]
     Dosage: 200 mg, bid
     Route: 042
     Dates: start: 20120506, end: 20120530
  6. PREDONINE [Concomitant]
     Dosage: UNK
     Dates: start: 20120426, end: 20120507
  7. ZOVIRAX [Concomitant]
     Dosage: UNK
     Dates: start: 20120427, end: 20120427
  8. MEROPEN [Concomitant]
     Dosage: UNK
     Dates: start: 20120427, end: 20120507
  9. VANCOMYCIN HYDROCHLORIDE [Concomitant]
     Dosage: UNK
     Dates: start: 20120427, end: 20120501
  10. PRIDOL [Concomitant]
     Dosage: UNK
     Dates: start: 20120427, end: 20120429
  11. CEFTRIAXONE SODIUM [Concomitant]

REACTIONS (4)
  - Hepatic function abnormal [Recovered/Resolved]
  - Aspergillosis [Fatal]
  - Drug ineffective [Unknown]
  - Renal impairment [Recovered/Resolved]
